FAERS Safety Report 13261452 (Version 1)
Quarter: 2017Q1

REPORT INFORMATION
  Report Type: Spontaneous
  Country: US (occurrence: US)
  Receive Date: 20170222
  Receipt Date: 20170222
  Transmission Date: 20170428
  Serious: No
  Sender: FDA-Public Use
  Company Number: US-LANTHEUS-LMI-2016-00350

PATIENT
  Age: 63 Year
  Sex: Female
  Weight: 93 kg

DRUGS (5)
  1. ARMOUR THYROID [Concomitant]
     Active Substance: THYROID, PORCINE
     Indication: HYPOTHYROIDISM
     Dosage: 90 MG, QD
  2. NADOLOL. [Concomitant]
     Active Substance: NADOLOL
     Indication: PRODUCT USED FOR UNKNOWN INDICATION
     Dosage: 20 MG, QD
  3. DEFINITY [Suspect]
     Active Substance: PERFLUTREN
     Indication: ECHOCARDIOGRAM
     Dosage: 9.5 ML, SINGLE
     Dates: start: 20160622, end: 20160622
  4. DOBUTAMINE [Suspect]
     Active Substance: DOBUTAMINE\DOBUTAMINE HYDROCHLORIDE
     Indication: CARDIAC STRESS TEST
     Dosage: UNK
     Route: 065
     Dates: start: 20160622
  5. INSULIN [Concomitant]
     Active Substance: INSULIN NOS
     Indication: TYPE 2 DIABETES MELLITUS
     Dosage: 20 MG, QD
     Route: 048

REACTIONS (3)
  - Headache [Recovered/Resolved]
  - Spinal pain [Recovered/Resolved]
  - Back pain [Recovered/Resolved]

NARRATIVE: CASE EVENT DATE: 20160622
